FAERS Safety Report 26060940 (Version 1)
Quarter: 2025Q4

REPORT INFORMATION
  Report Type: Spontaneous
  Country: EU (occurrence: EU)
  Receive Date: 20251118
  Receipt Date: 20251118
  Transmission Date: 20260117
  Serious: Yes (Hospitalization)
  Sender: TEVA
  Company Number: None

PATIENT
  Age: 78 Year
  Sex: Female
  Weight: 68 kg

DRUGS (4)
  1. HYDROCHLOROTHIAZIDE [Suspect]
     Active Substance: HYDROCHLOROTHIAZIDE
     Indication: Hypertension
     Dosage: 1 PIECE ONCE A DAY; BRAND NAME NOT SPECIFIED
     Route: 048
     Dates: start: 20220916, end: 20251022
  2. LATANOPROST [Concomitant]
     Active Substance: LATANOPROST
     Indication: Product used for unknown indication
     Dosage: 50UG/ML / BRAND NAME NOT SPECIFIED
     Route: 065
  3. BROMAZEPAM [Concomitant]
     Active Substance: BROMAZEPAM
     Indication: Product used for unknown indication
     Dosage: 12 MG, 1 PIECE ONCE A DAY; BRAND NAME NOT SPECIFIED
     Route: 065
  4. TIMOLOL BRIMONIDINE [Concomitant]
     Indication: Product used for unknown indication
     Dosage: 5/2 MG/ML (MILLIGRAMS PER MILLILITER)/ BRAND NAME NOT SPECIFIED
     Route: 065

REACTIONS (2)
  - Hypokalaemia [Recovered/Resolved]
  - Fall [Recovered/Resolved]
